FAERS Safety Report 5490678-6 (Version None)
Quarter: 2007Q4

REPORT INFORMATION
  Report Type: 
  Country: None (occurrence: None)
  Receive Date: 20071019
  Receipt Date: 20071012
  Transmission Date: 20080405
  Serious: Yes (Other)
  Sender: FDA-Public Use
  Company Number: CA-ASTRAZENECA-2006UW26932

PATIENT
  Age: 56 Year
  Sex: Female

DRUGS (2)
  1. SEROQUEL [Suspect]
     Indication: INSOMNIA
     Route: 048
  2. TAMOXIFEN CITRATE [Interacting]
     Indication: BREAST CANCER
     Route: 048
     Dates: start: 20061027, end: 20061116

REACTIONS (2)
  - DRUG INTERACTION [None]
  - SLEEP DISORDER [None]
